FAERS Safety Report 16131243 (Version 2)
Quarter: 2019Q2

REPORT INFORMATION
  Report Type: Spontaneous
  Country: KR (occurrence: KR)
  Receive Date: 20190328
  Receipt Date: 20190404
  Transmission Date: 20190711
  Serious: Yes (Death, Hospitalization, Other)
  Sender: FDA-Public Use
  Company Number: KR-009507513-1903KOR012132

PATIENT
  Sex: Male

DRUGS (52)
  1. DONG A GASTER [Concomitant]
     Dosage: UNK
     Dates: start: 20190309, end: 20190313
  2. ENCOVER [Concomitant]
     Dosage: UNK
     Dates: start: 20190309, end: 20190312
  3. TARGIN [Concomitant]
     Active Substance: NALOXONE HYDROCHLORIDE\OXYCODONE HYDROCHLORIDE
     Dosage: UNK
     Dates: start: 20190309, end: 20190312
  4. DEXTROSE. [Concomitant]
     Active Substance: DEXTROSE
     Dosage: UNK
     Dates: start: 20190314, end: 20190316
  5. LASIX [Concomitant]
     Active Substance: FUROSEMIDE
     Dosage: UNK
     Dates: start: 20190315, end: 20190316
  6. WINUF [Concomitant]
     Dosage: UNK
     Dates: start: 20190312, end: 20190314
  7. HERBEN [Concomitant]
     Active Substance: DILTIAZEM HYDROCHLORIDE
     Dosage: UNK
     Dates: start: 20190308, end: 20190313
  8. MEGACE [Concomitant]
     Active Substance: MEGESTROL ACETATE
     Dosage: UNK
     Dates: start: 20190313, end: 20190313
  9. PHAZYME (SIMETHICONE) [Concomitant]
     Dosage: UNK
     Dates: start: 20190308, end: 20190308
  10. RESOLOR [Concomitant]
     Active Substance: PRUCALOPRIDE SUCCINATE
     Dosage: UNK
     Dates: start: 20190310, end: 20190313
  11. DICAMAX [Concomitant]
     Dosage: UNK
     Dates: start: 20190308, end: 20190313
  12. SODIUM CHLORIDE. [Concomitant]
     Active Substance: SODIUM CHLORIDE
     Dosage: UNK
     Dates: start: 20190314, end: 20190315
  13. SODIUM CHLORIDE. [Concomitant]
     Active Substance: SODIUM CHLORIDE
     Dosage: UNK
     Dates: start: 20190314, end: 20190316
  14. TAZOPERAN [Concomitant]
     Dosage: UNK
     Dates: start: 20190314, end: 20190314
  15. ALBUMIN HUMAN [Concomitant]
     Active Substance: ALBUMIN HUMAN
     Dosage: UNK
     Dates: start: 20190314, end: 20190314
  16. MORPHINE [Concomitant]
     Active Substance: MORPHINE
     Dosage: UNK
     Dates: start: 20190316, end: 20190316
  17. ERDOS [Concomitant]
     Active Substance: ERDOSTEINE
     Dosage: UNK
     Dates: start: 20190309, end: 20190310
  18. MEGACE [Concomitant]
     Active Substance: MEGESTROL ACETATE
     Dosage: UNK
     Dates: start: 20190308, end: 20190314
  19. DONG A GASTER [Concomitant]
     Dosage: UNK
     Dates: start: 20190314, end: 20190314
  20. SODIUM CHLORIDE. [Concomitant]
     Active Substance: SODIUM CHLORIDE
     Dosage: UNK
     Dates: start: 20190314, end: 20190314
  21. NORPIN INJECTION [Concomitant]
     Dosage: UNK
     Dates: start: 20190314, end: 20190316
  22. MEIACT [Concomitant]
     Active Substance: CEFDITOREN PIVOXIL
     Dosage: UNK
     Dates: start: 20190314, end: 20190314
  23. DEXAMETHASONE. [Concomitant]
     Active Substance: DEXAMETHASONE
     Dosage: UNK
     Dates: start: 20190308, end: 20190311
  24. AGIO [Concomitant]
     Dosage: UNK
     Dates: start: 20190309, end: 20190311
  25. ENCOVER [Concomitant]
     Dosage: UNK
     Dates: start: 20190310, end: 20190313
  26. SODIUM CHLORIDE. [Concomitant]
     Active Substance: SODIUM CHLORIDE
     Dosage: UNK
     Dates: start: 20190311, end: 20190311
  27. TRIDOL (TRAMADOL HYDROCHLORIDE) [Concomitant]
     Dosage: UNK
     Dates: start: 20190310, end: 20190310
  28. MEPEM [Concomitant]
     Active Substance: MEROPENEM
     Dosage: UNK
     Dates: start: 20190314, end: 20190316
  29. CORTISOLU [Concomitant]
     Active Substance: HYDROCORTISONE SODIUM SUCCINATE
     Dosage: UNK
     Dates: start: 20190314, end: 20190314
  30. CORTISOLU [Concomitant]
     Active Substance: HYDROCORTISONE SODIUM SUCCINATE
     Dosage: UNK
     Dates: start: 20190315, end: 20190315
  31. WINUF [Concomitant]
     Dosage: UNK
     Dates: start: 20190314, end: 20190316
  32. DULCOLAX NOS [Concomitant]
     Active Substance: BISACODYL OR DOCUSATE SODIUM
     Dosage: UNK
     Dates: start: 20190310, end: 20190313
  33. SYNTHYROXINE [Concomitant]
     Active Substance: LEVOTHYROXINE SODIUM
     Dosage: UNK
     Dates: start: 20190308, end: 20190314
  34. DEXTROSE. [Concomitant]
     Active Substance: DEXTROSE
     Dosage: UNK
     Dates: start: 20190316, end: 20190316
  35. DISOLRIN [Concomitant]
     Dosage: UNK
     Dates: start: 20190314, end: 20190314
  36. KEYTRUDA [Suspect]
     Active Substance: PEMBROLIZUMAB
     Indication: LUNG NEOPLASM MALIGNANT
     Dosage: QUANTITY 2; DAYS 1
     Dates: start: 20190311
  37. ERDOS [Concomitant]
     Active Substance: ERDOSTEINE
     Dosage: UNK
     Dates: start: 20190311, end: 20190311
  38. SOLONDO [Concomitant]
     Active Substance: PREDNISOLONE
     Dosage: UNK
     Dates: start: 20190312, end: 20190314
  39. ENCOVER [Concomitant]
     Dosage: UNK
     Dates: start: 20190314, end: 20190314
  40. PHAZYME (SIMETHICONE) [Concomitant]
     Dosage: UNK
     Dates: start: 20190309, end: 20190310
  41. CRESTOR [Concomitant]
     Active Substance: ROSUVASTATIN CALCIUM
     Dosage: UNK
     Dates: start: 20190308, end: 20190313
  42. MAGO [Concomitant]
     Dosage: UNK
     Dates: start: 20190309, end: 20190319
  43. TEICONIN [Concomitant]
     Dosage: UNK
     Dates: start: 20190315, end: 20190315
  44. TAMIPOOL [Concomitant]
     Active Substance: VITAMINS
     Dosage: UNK
     Dates: start: 20190312, end: 20190316
  45. ASPIRIN PROTECT [Concomitant]
     Active Substance: ASPIRIN
     Dosage: UNK
     Dates: start: 20190308, end: 20190311
  46. DEXAMETHASONE. [Concomitant]
     Active Substance: DEXAMETHASONE
     Dosage: UNK
     Dates: start: 20190309, end: 20190310
  47. IRCODON [Concomitant]
     Active Substance: OXYCODONE HYDROCHLORIDE
     Dosage: UNK
     Dates: start: 20190311, end: 20190311
  48. TARGIN [Concomitant]
     Active Substance: NALOXONE HYDROCHLORIDE\OXYCODONE HYDROCHLORIDE
     Dosage: UNK
     Dates: start: 20190308, end: 20190313
  49. ALBUMIN HUMAN [Concomitant]
     Active Substance: ALBUMIN HUMAN
     Dosage: UNK
     Dates: start: 20190315, end: 20190315
  50. DEXTROSE. [Concomitant]
     Active Substance: DEXTROSE
     Dosage: UNK
     Dates: start: 20190314, end: 20190314
  51. CRAVIT [Concomitant]
     Active Substance: LEVOFLOXACIN
     Dosage: UNK
     Dates: start: 20190314, end: 20190316
  52. LASIX [Concomitant]
     Active Substance: FUROSEMIDE
     Dosage: UNK
     Dates: start: 20190315, end: 20190316

REACTIONS (2)
  - Adverse event [Unknown]
  - Malignant neoplasm progression [Fatal]

NARRATIVE: CASE EVENT DATE: 201903
